FAERS Safety Report 15525266 (Version 1)
Quarter: 2018Q4

REPORT INFORMATION
  Report Type: Spontaneous
  Country: ES (occurrence: ES)
  Receive Date: 20181019
  Receipt Date: 20181019
  Transmission Date: 20190205
  Serious: Yes (Life-Threatening, Hospitalization)
  Sender: FDA-Public Use
  Company Number: ES-PFIZER INC-2018426948

PATIENT
  Age: 40 Year
  Sex: Male

DRUGS (4)
  1. DACARBAZINE. [Interacting]
     Active Substance: DACARBAZINE
     Indication: HODGKIN^S DISEASE
     Dosage: 690 MG, CYCLIC (690 MG DAY 1 AND DAY 15 EVERY 28 DAYS)
     Route: 042
     Dates: start: 20180830, end: 20180913
  2. VINBLASTINE [Interacting]
     Active Substance: VINBLASTINE
     Indication: HODGKIN^S DISEASE
     Dosage: 11 MG, CYCLIC (11 MG DAY 1 AND DAY 15 EVERY .. (DAYS UNSPECIFIED))
     Route: 042
     Dates: start: 20180830, end: 20180913
  3. DOXORUBICIN HCL [Suspect]
     Active Substance: DOXORUBICIN HYDROCHLORIDE
     Indication: HODGKIN^S DISEASE
     Dosage: 46 MG, CYCLIC (46 MG DAY 1 AND DAY 15 EVERY 28 DAYS)
     Route: 042
     Dates: start: 20180830, end: 20180913
  4. BLEOMYCIN [Interacting]
     Active Substance: BLEOMYCIN SULFATE
     Indication: HODGKIN^S DISEASE
     Dosage: 18 MG, CYCLIC (18 MG DAY 1 AND DAY 15 EVERY 28 DAYS)
     Route: 042
     Dates: start: 20180830, end: 20180915

REACTIONS (2)
  - Agranulocytosis [Recovered/Resolved]
  - Drug interaction [Unknown]

NARRATIVE: CASE EVENT DATE: 20180922
